FAERS Safety Report 12516786 (Version 1)
Quarter: 2016Q2

REPORT INFORMATION
  Report Type: Spontaneous
  Country: DE (occurrence: DE)
  Receive Date: 20160630
  Receipt Date: 20160630
  Transmission Date: 20160815
  Serious: Yes (Congenital Anomaly)
  Sender: FDA-Public Use
  Company Number: DE-SUN PHARMACEUTICAL INDUSTRIES LTD-2016RR-119370

PATIENT
  Age: 1 Day
  Sex: Male
  Weight: 2.3 kg

DRUGS (8)
  1. AMLODIPINE [Concomitant]
     Active Substance: AMLODIPINE BESYLATE
     Indication: PRIMARY HYPERALDOSTERONISM
     Dosage: 5 MG, BID; 0-5.2 GESTATIONAL WEEK
     Route: 064
     Dates: start: 20150421, end: 20150528
  2. SPIRONOLACTONE. [Suspect]
     Active Substance: SPIRONOLACTONE
     Indication: PRIMARY HYPERALDOSTERONISM
     Dosage: 50 MG, QD; 0-33.6 GESTATIONAL WEEK
     Route: 064
     Dates: start: 20150421, end: 20151214
  3. METHYLDOPA. [Suspect]
     Active Substance: METHYLDOPA
     Indication: HYPERTENSIVE HEART DISEASE
     Dosage: 500 MG, TID; 4.6-33.6 GESTATIONAL WEEK
     Route: 064
     Dates: start: 20150525, end: 20151214
  4. HYDROCHLOROTHIAZIDE. [Concomitant]
     Active Substance: HYDROCHLOROTHIAZIDE
     Indication: HYPERTENSIVE HEART DISEASE
     Dosage: 0-4.6 GESTATIONAL WEEK
     Route: 064
     Dates: start: 20150421, end: 20150525
  5. METOPROLOL. [Suspect]
     Active Substance: METOPROLOL
     Indication: PRIMARY HYPERALDOSTERONISM
     Dosage: 100 MG, BID; 0-33.6 GESTATIONAL WEEK
     Route: 064
     Dates: start: 20150421, end: 20151214
  6. RAMIPRIL. [Concomitant]
     Active Substance: RAMIPRIL
     Indication: HYPERTENSIVE HEART DISEASE
     Dosage: 1.25 MG, BID; 0-5 GESTATIONAL WEEK
     Route: 064
     Dates: start: 20150421, end: 20150526
  7. TORASEMIDE [Concomitant]
     Active Substance: TORSEMIDE
     Indication: HYPERTENSIVE HEART DISEASE
     Dosage: 2.5 MG, QD; 0-5 GESTATIONAL WEEK
     Route: 064
     Dates: start: 20150421, end: 20150526
  8. BETAMETHASONE. [Concomitant]
     Active Substance: BETAMETHASONE
     Indication: MATERNAL THERAPY TO ENHANCE FOETAL LUNG MATURITY
     Dosage: 33.1-33.1 GESTATIONAL WEEK
     Route: 064
     Dates: start: 20151209, end: 20151209

REACTIONS (2)
  - Atrial septal defect [Unknown]
  - Patent ductus arteriosus [Recovered/Resolved]

NARRATIVE: CASE EVENT DATE: 20151214
